FAERS Safety Report 14649686 (Version 6)
Quarter: 2022Q2

REPORT INFORMATION
  Report Type: Report from Study
  Country: NZ (occurrence: None)
  Receive Date: 20180316
  Receipt Date: 20220617
  Transmission Date: 20220721
  Serious: Yes (Hospitalization)
  Sender: FDA-Public Use
  Company Number: NZ-ROCHE-2083327

PATIENT
  Age: 73 Year
  Sex: Male
  Weight: 82 kg

DRUGS (20)
  1. VENETOCLAX [Suspect]
     Active Substance: VENETOCLAX
     Indication: Chronic lymphocytic leukaemia
     Dosage: DATE OF MOST RECENT DOSE OF 400 MG OF VENETOCLAX PRIOR TO SERIOUS ADVERSE EVENT (SAE) 29/FEB/2016 AT
     Route: 048
     Dates: start: 20150421
  2. OBINUTUZUMAB [Suspect]
     Active Substance: OBINUTUZUMAB
     Indication: Chronic lymphocytic leukaemia
     Dosage: DOSE ACCORDING TO PROTOCOL (100 MG OR 1000 MG, DEPENDING ON SPLITTING RULES, AT CYCLE 1, DAY 1 (IF 1
     Route: 042
     Dates: start: 20150324
  3. VITAMIN B3 [Concomitant]
     Active Substance: NIACIN
     Route: 048
     Dates: start: 20150310
  4. HERBALS\TURMERIC [Concomitant]
     Active Substance: HERBALS\TURMERIC
     Route: 048
     Dates: start: 20150103
  5. FISH OIL [Concomitant]
     Active Substance: FISH OIL
     Route: 048
  6. VITAMIN C [Concomitant]
     Active Substance: ASCORBIC ACID
     Route: 048
     Dates: start: 20150103
  7. CINNAMON [Concomitant]
     Active Substance: CINNAMON
     Dosage: 0.3 TBSP (TABLESPOON)
     Route: 048
     Dates: start: 20141130
  8. OLEA EUROPAEA LEAF [Concomitant]
     Active Substance: OLEA EUROPAEA LEAF
     Route: 048
     Dates: start: 20160331
  9. APPLE SEEDS [Concomitant]
     Route: 048
     Dates: start: 20160331
  10. FLAXSEED [Concomitant]
     Active Substance: FLAX SEED
     Dosage: 1 TBSP (TABLESPOON DOSING UNIT)
     Route: 048
     Dates: start: 20160331
  11. FUROSEMIDE [Concomitant]
     Active Substance: FUROSEMIDE
     Indication: Dyspnoea
     Route: 048
     Dates: start: 20180403
  12. GLUCOSAMINE [Concomitant]
     Active Substance: GLUCOSAMINE
     Route: 048
     Dates: start: 20150303
  13. ZOPICLONE [Concomitant]
     Active Substance: ZOPICLONE
     Indication: Insomnia
     Route: 048
     Dates: start: 20180223, end: 20180223
  14. MIDAZOLAM [Concomitant]
     Active Substance: MIDAZOLAM
     Indication: Bronchoscopy
     Route: 042
     Dates: start: 20180301, end: 20180301
  15. FENTANYL [Concomitant]
     Active Substance: FENTANYL
     Indication: Bronchoscopy
     Route: 042
     Dates: start: 20180301, end: 20180301
  16. METOPROLOL [Concomitant]
     Active Substance: METOPROLOL
     Indication: Atrial fibrillation
     Route: 048
     Dates: start: 20180129
  17. AMOXICILLIN [Concomitant]
     Active Substance: AMOXICILLIN
     Indication: Lower respiratory tract infection
     Route: 048
     Dates: start: 20180222, end: 20180222
  18. AZITHROMYCIN [Concomitant]
     Active Substance: AZITHROMYCIN
     Indication: Lower respiratory tract infection
     Route: 048
     Dates: start: 20180222, end: 20180226
  19. INFLUENZA VIRUS VACCINE [Concomitant]
     Active Substance: INFLUENZA VIRUS VACCINE
     Dosage: 1 U
     Route: 058
     Dates: start: 20200324, end: 20200324
  20. INFLUENZA VIRUS VACCINE [Concomitant]
     Active Substance: INFLUENZA VIRUS VACCINE
     Dates: start: 20130304

REACTIONS (1)
  - Pneumocystis jirovecii pneumonia [Recovering/Resolving]

NARRATIVE: CASE EVENT DATE: 20180214
